FAERS Safety Report 20773234 (Version 1)
Quarter: 2022Q2

REPORT INFORMATION
  Report Type: Report from Study
  Country: US (occurrence: US)
  Receive Date: 20220502
  Receipt Date: 20220502
  Transmission Date: 20220721
  Serious: Yes (Hospitalization)
  Sender: FDA-Public Use
  Company Number: US-Accord-262090

PATIENT
  Sex: Male
  Weight: 71.80 kg

DRUGS (1)
  1. CLOZAPINE [Suspect]
     Active Substance: CLOZAPINE
     Indication: Product used for unknown indication
     Dosage: 50MG IN THE MORNING AND 400MG IN THE EVENING

REACTIONS (2)
  - Abdominal pain [Unknown]
  - Vomiting [Unknown]
